FAERS Safety Report 14377612 (Version 1)
Quarter: 2018Q1

REPORT INFORMATION
  Report Type: Spontaneous
  Country: IN (occurrence: IN)
  Receive Date: 20180111
  Receipt Date: 20180111
  Transmission Date: 20180509
  Serious: Yes (Death)
  Sender: FDA-Public Use
  Company Number: IN-SA-2018SA005270

PATIENT
  Age: 18 Year
  Sex: Male

DRUGS (1)
  1. PRIMAQUINE [Suspect]
     Active Substance: PRIMAQUINE PHOSPHATE
     Indication: MALARIA
     Route: 048

REACTIONS (5)
  - Haemolytic anaemia [Fatal]
  - Acute kidney injury [Fatal]
  - Reticulocyte count increased [Fatal]
  - Hyperbilirubinaemia [Fatal]
  - Haemoglobin decreased [Fatal]
